FAERS Safety Report 7007138-3 (Version None)
Quarter: 2010Q3

REPORT INFORMATION
  Report Type: 
  Country: None (occurrence: None)
  Receive Date: 20100913
  Receipt Date: 20100824
  Transmission Date: 20110219
  Serious: Yes (Hospitalization)
  Sender: FDA-Public Use
  Company Number: B0672939A

PATIENT
  Age: 53 Year
  Sex: Male

DRUGS (11)
  1. ZIDOVUDINE [Suspect]
     Indication: HIV INFECTION
  2. LAMIVUDINE [Suspect]
     Indication: HIV INFECTION
  3. PREDNISOLONE (FORMULATION UNKNOWN) (GENERIC) [Suspect]
     Indication: B-CELL LYMPHOMA
  4. EFAVIRENZ [Suspect]
     Indication: HIV INFECTION
  5. CYCLOPHOSPHAMIDE [Suspect]
     Indication: B-CELL LYMPHOMA
  6. DOXORUBICIN HCL [Suspect]
     Indication: B-CELL LYMPHOMA
  7. VINCRISTINE [Suspect]
     Indication: B-CELL LYMPHOMA
  8. PREDNISONE [Suspect]
     Indication: B-CELL LYMPHOMA
  9. COTRIM [Concomitant]
  10. ANTIFUNGAL [Concomitant]
  11. ANTI-TB MEDICATION [Concomitant]

REACTIONS (6)
  - BLOOD LACTATE DEHYDROGENASE INCREASED [None]
  - HEPATOSPLENOMEGALY [None]
  - IMMUNE RECONSTITUTION SYNDROME [None]
  - LYMPHADENOPATHY [None]
  - ORAL CANDIDIASIS [None]
  - TUBERCULOSIS [None]
